FAERS Safety Report 5277063-7 (Version None)
Quarter: 2007Q1

REPORT INFORMATION
  Report Type: 
  Country: None (occurrence: None)
  Receive Date: 20070327
  Receipt Date: 20070319
  Transmission Date: 20070707
  Serious: Yes (Other)
  Sender: FDA-Public Use
  Company Number: NO-PFIZER INC-2007021347

PATIENT
  Age: 61 Year

DRUGS (6)
  1. DOXORUBICIN HCL [Suspect]
     Indication: NON-HODGKIN'S LYMPHOMA
     Dosage: DAILY DOSE:50MG/M*2
     Route: 042
  2. PREDNISOLONE [Suspect]
     Indication: NON-HODGKIN'S LYMPHOMA
     Dosage: DAILY DOSE:100MG/M*2-FREQ:DAY1 TO DAY5
     Route: 048
  3. CYCLOPHOSPHAMIDE [Suspect]
     Indication: NON-HODGKIN'S LYMPHOMA
     Dosage: DAILY DOSE:750MG/M*2
     Route: 042
  4. ETOPOSIDE [Suspect]
     Indication: NON-HODGKIN'S LYMPHOMA
     Dosage: DAILY DOSE:100MG/M*2-FREQ:DAY1 TO DAY3
     Route: 042
  5. VINCRISTINE SULFATE [Suspect]
     Indication: NON-HODGKIN'S LYMPHOMA
     Dosage: DAILY DOSE:1MG/M*2
     Route: 042
  6. RITUXIMAB [Suspect]

REACTIONS (1)
  - PNEUMOCYSTIS JIROVECI PNEUMONIA [None]
